FAERS Safety Report 7449633-9 (Version None)
Quarter: 2011Q2

REPORT INFORMATION
  Report Type: 
  Country: None (occurrence: None)
  Receive Date: 20110420
  Receipt Date: 20110407
  Transmission Date: 20111010
  Serious: Yes (Life-Threatening, Hospitalization)
  Sender: FDA-Public Use
  Company Number: 2011MA003551

PATIENT
  Age: 23 Year
  Sex: Female

DRUGS (2)
  1. NIFEDIPINE [Concomitant]
  2. FEVERALL [Suspect]
     Indication: SUICIDE ATTEMPT

REACTIONS (23)
  - MULTIPLE DRUG OVERDOSE [None]
  - CHEST DISCOMFORT [None]
  - TACHYPNOEA [None]
  - CELL DEATH [None]
  - PLEURISY [None]
  - CYANOSIS [None]
  - TACHYCARDIA [None]
  - TINNITUS [None]
  - METABOLIC ACIDOSIS [None]
  - NAUSEA [None]
  - PALPITATIONS [None]
  - PALLOR [None]
  - ELECTROCARDIOGRAM ST-T SEGMENT ABNORMAL [None]
  - GASTROINTESTINAL SOUNDS ABNORMAL [None]
  - CONTINUOUS HAEMODIAFILTRATION [None]
  - PANCREATITIS ACUTE [None]
  - SUICIDE ATTEMPT [None]
  - RESPIRATORY DISTRESS [None]
  - MENTAL STATUS CHANGES [None]
  - TOXICITY TO VARIOUS AGENTS [None]
  - ASPARTATE AMINOTRANSFERASE INCREASED [None]
  - ALANINE AMINOTRANSFERASE INCREASED [None]
  - HYPOTENSION [None]
